FAERS Safety Report 17216079 (Version 3)
Quarter: 2020Q2

REPORT INFORMATION
  Report Type: Spontaneous
  Country: US (occurrence: US)
  Receive Date: 20191230
  Receipt Date: 20200512
  Transmission Date: 20200713
  Serious: Yes (Other)
  Sender: FDA-Public Use
  Company Number: NVSC2019US081204

PATIENT
  Age: 72 Year
  Sex: Female

DRUGS (1)
  1. BEOVU [Suspect]
     Active Substance: BROLUCIZUMAB-DBLL
     Indication: NEOVASCULAR AGE-RELATED MACULAR DEGENERATION
     Dosage: 6 MG
     Route: 065
     Dates: start: 20191126, end: 20191224

REACTIONS (4)
  - Vitreal cells [Unknown]
  - Anterior chamber inflammation [Unknown]
  - Intraocular pressure increased [Unknown]
  - Vision blurred [Unknown]
